FAERS Safety Report 19267779 (Version 1)
Quarter: 2021Q2

REPORT INFORMATION
  Report Type: Spontaneous
  Country: AU (occurrence: AU)
  Receive Date: 20210518
  Receipt Date: 20210518
  Transmission Date: 20210717
  Serious: Yes (Congenital Anomaly, Other)
  Sender: FDA-Public Use
  Company Number: AU-ASTRAZENECA-2021A420199

PATIENT
  Sex: Male

DRUGS (2)
  1. BRICANYL [Suspect]
     Active Substance: TERBUTALINE SULFATE
     Dosage: 500, 3 INHALATIONS EVERY 6 HOURS
     Route: 055
  2. SYMBICORT [Suspect]
     Active Substance: BUDESONIDE\FORMOTEROL FUMARATE DIHYDRATE
     Dosage: 400/12 2 PUFFS TWICE A DAY
     Route: 055

REACTIONS (2)
  - Adverse event [Not Recovered/Not Resolved]
  - Dyspnoea [Unknown]
